FAERS Safety Report 20094071 (Version 1)
Quarter: 2021Q4

REPORT INFORMATION
  Report Type: Spontaneous
  Country: US (occurrence: US)
  Receive Date: 20211121
  Receipt Date: 20211121
  Transmission Date: 20220303
  Serious: No
  Sender: FDA-Public Use
  Company Number: US-JNJFOC-20211048679

PATIENT
  Sex: Male

DRUGS (2)
  1. ACETAMINOPHEN [Suspect]
     Active Substance: ACETAMINOPHEN
     Indication: Pain
     Dosage: 1500MG WITHIN 1.5 HOURS
     Route: 065
  2. COVID-19 VACCINE [Concomitant]
     Indication: Immunisation
     Route: 065

REACTIONS (5)
  - Drug intolerance [Unknown]
  - Blood pressure decreased [Unknown]
  - Speech disorder [Unknown]
  - Mastication disorder [Unknown]
  - Incorrect dose administered [Unknown]
